FAERS Safety Report 5290499-3 (Version None)
Quarter: 2007Q2

REPORT INFORMATION
  Report Type: 
  Country: None (occurrence: None)
  Receive Date: 20070409
  Receipt Date: 20070327
  Transmission Date: 20071010
  Serious: Yes (Hospitalization)
  Sender: FDA-Public Use
  Company Number: PHEH2007US03615

PATIENT
  Age: 59 Year
  Sex: Male

DRUGS (5)
  1. ZOMETA [Suspect]
     Indication: METASTASES TO BONE
     Dosage: 4 MG QMO
     Route: 042
     Dates: start: 20040501, end: 20061101
  2. RADIATION THERAPY [Concomitant]
     Indication: METASTASES TO BONE
     Dates: start: 20040401, end: 20040501
  3. CASODEX [Concomitant]
     Indication: NEOPLASM MALIGNANT
  4. LUPRON [Concomitant]
     Indication: PROSTATE CANCER
  5. LEXAPRO [Concomitant]

REACTIONS (16)
  - ACTINOMYCOSIS [None]
  - BACK PAIN [None]
  - BIOPSY GINGIVAL [None]
  - BLOOD PRESSURE INCREASED [None]
  - BONE DISORDER [None]
  - BONE LESION [None]
  - DENTAL CARIES [None]
  - GINGIVAL SWELLING [None]
  - HAEMOGLOBIN DECREASED [None]
  - METASTASIS [None]
  - OSTEOMYELITIS [None]
  - OSTEONECROSIS [None]
  - PAIN [None]
  - PAIN IN JAW [None]
  - PROSTATE CANCER [None]
  - PROSTATIC SPECIFIC ANTIGEN INCREASED [None]
